FAERS Safety Report 5079612-0 (Version None)
Quarter: 2006Q3

REPORT INFORMATION
  Report Type: 
  Country: None (occurrence: None)
  Receive Date: 20060814
  Receipt Date: 20060809
  Transmission Date: 20061208
  Serious: Yes (Life-Threatening, Other)
  Sender: FDA-Public Use
  Company Number: 2006A2000168

PATIENT
  Age: 11 Day
  Sex: Male
  Weight: 3.6 kg

DRUGS (3)
  1. ZIDOVUDINE [Suspect]
     Dosage: 12MG TWICE PER DAY
     Route: 048
     Dates: start: 20060703
  2. LAMIVUDINE [Suspect]
     Dosage: 8MG TWICE PER DAY
     Route: 048
     Dates: start: 20060703, end: 20060717
  3. NELFINAVIR [Suspect]
     Dosage: 150MG TWICE PER DAY
     Route: 048
     Dates: start: 20060703, end: 20060717

REACTIONS (3)
  - ALANINE AMINOTRANSFERASE INCREASED [None]
  - ASPARTATE AMINOTRANSFERASE INCREASED [None]
  - NEUTROPENIA [None]
